FAERS Safety Report 7523830-6 (Version None)
Quarter: 2011Q2

REPORT INFORMATION
  Report Type: 
  Country: None (occurrence: None)
  Receive Date: 20110603
  Receipt Date: 20110523
  Transmission Date: 20111010
  Serious: Yes (Other)
  Sender: FDA-Public Use
  Company Number: JP-ELI_LILLY_AND_COMPANY-JP201104002076

PATIENT
  Age: 72 Year
  Sex: Male
  Weight: 57 kg

DRUGS (5)
  1. VITAMIN B-12 [Concomitant]
  2. FOLIC ACID [Concomitant]
  3. ISOSORBIDE DINITRATE [Concomitant]
     Dosage: 40 MG, QD
     Route: 048
     Dates: start: 20101015
  4. ALIMTA [Suspect]
     Indication: NON-SMALL CELL LUNG CANCER
     Dosage: 500 MG/M2, OTHER
     Route: 042
     Dates: start: 20101110, end: 20110316
  5. ALIMTA [Suspect]
     Dosage: UNK
     Route: 042
     Dates: start: 20110401

REACTIONS (1)
  - MYOCARDIAL INFARCTION [None]
